FAERS Safety Report 5188756-4 (Version None)
Quarter: 2006Q4

REPORT INFORMATION
  Report Type: 
  Country: None (occurrence: None)
  Receive Date: 20061221
  Receipt Date: 20061211
  Transmission Date: 20070319
  Serious: Yes (Hospitalization)
  Sender: FDA-Public Use
  Company Number: BR-ABBOTT-06P-020-0353142-00

PATIENT
  Sex: Male
  Weight: 80 kg

DRUGS (4)
  1. DEPAKENE [Suspect]
     Indication: EPILEPSY
     Route: 048
     Dates: start: 19860101
  2. PHENOBARBITAL TAB [Concomitant]
     Indication: EPILEPSY
     Route: 048
     Dates: start: 19660101
  3. PHENITOINE 100 MG [Concomitant]
     Indication: EPILEPSY
     Route: 048
     Dates: start: 19660101
  4. TOPIRAMATE [Concomitant]
     Indication: PETIT MAL EPILEPSY
     Route: 048
     Dates: start: 20010101

REACTIONS (4)
  - ANKLE FRACTURE [None]
  - BLOOD CALCIUM DECREASED [None]
  - BLOOD MAGNESIUM DECREASED [None]
  - OEDEMA PERIPHERAL [None]
